FAERS Safety Report 9781044 (Version 1)
Quarter: 2013Q4

REPORT INFORMATION
  Report Type: Spontaneous
  Country: GB (occurrence: GB)
  Receive Date: 20131224
  Receipt Date: 20131224
  Transmission Date: 20140711
  Serious: Yes (Life-Threatening, Hospitalization)
  Sender: FDA-Public Use
  Company Number: PHHY2013GB147140

PATIENT
  Age: 40 Year
  Sex: Female

DRUGS (5)
  1. GABAPENTIN [Suspect]
     Route: 048
  2. DIAZEPAM [Suspect]
  3. DIAMORPHINE HYDROCHLORIDE [Suspect]
  4. METHADONE [Suspect]
  5. ALCOHOL [Suspect]

REACTIONS (2)
  - Coma [Unknown]
  - Intentional overdose [Recovering/Resolving]
